FAERS Safety Report 5716447-7 (Version None)
Quarter: 2008Q2

REPORT INFORMATION
  Report Type: 
  Country: None (occurrence: None)
  Receive Date: 20080424
  Receipt Date: 20080418
  Transmission Date: 20081010
  Serious: Yes (Hospitalization, Disabling, Other)
  Sender: FDA-Public Use
  Company Number: CA-AVENTIS-200813591GDDC

PATIENT
  Age: 57 Year
  Sex: Male

DRUGS (5)
  1. TAXOTERE [Suspect]
     Indication: PROSTATE CANCER
     Dates: start: 20030428, end: 20030604
  2. RADIOTHERAPY [Suspect]
     Indication: PROSTATE CANCER
     Dates: end: 20031112
  3. ARTHROTEC [Concomitant]
     Indication: ARTHRITIS
     Route: 048
     Dates: start: 20050901
  4. MESLON [Concomitant]
     Route: 048
     Dates: start: 20060530
  5. DIDROCAL [Concomitant]
     Indication: OSTEOPOROSIS
     Route: 048
     Dates: start: 20060530

REACTIONS (1)
  - ENTEROVESICAL FISTULA [None]
